FAERS Safety Report 6625990-8 (Version None)
Quarter: 2010Q1

REPORT INFORMATION
  Report Type: 
  Country: None (occurrence: None)
  Receive Date: 20100305
  Receipt Date: 20100219
  Transmission Date: 20100710
  Serious: Yes (Death, Hospitalization)
  Sender: FDA-Public Use
  Company Number: 2009003503

PATIENT
  Age: 69 Year
  Sex: Male

DRUGS (8)
  1. ERLOTINIB HYDROCHLORIDE [Suspect]
     Indication: LUNG NEOPLASM MALIGNANT
     Dosage: 150 MG, QD, ORAL
     Route: 048
     Dates: start: 20090902, end: 20091013
  2. TAXOTERE [Suspect]
     Indication: LUNG NEOPLASM MALIGNANT
     Dosage: 150 MG, Q3W, INTRAVENOUS
     Route: 042
     Dates: start: 20090830
  3. TINZAPARIN SODIUM (HEPARIN-FRACTION, SODIUM SALT) [Concomitant]
  4. DILTIAZEM HCL [Concomitant]
  5. RANITIDINE HYDROCHLORIDE [Concomitant]
  6. DEXAMETHASONE TAB [Concomitant]
  7. LEVOCETIRIZINE (LVECOCETIRIZINE) [Concomitant]
  8. GRANULOCYTE COLONY STIMULATING FACTOR (GRANULOCYTE COLONY STIMULATING [Concomitant]

REACTIONS (7)
  - ABNORMAL BEHAVIOUR [None]
  - ACUTE RESPIRATORY FAILURE [None]
  - DIZZINESS [None]
  - METASTASES TO CENTRAL NERVOUS SYSTEM [None]
  - PYREXIA [None]
  - UNRESPONSIVE TO STIMULI [None]
  - URINARY RETENTION [None]
